FAERS Safety Report 15624973 (Version 5)
Quarter: 2019Q1

REPORT INFORMATION
  Report Type: Report from Study
  Country: None (occurrence: US)
  Receive Date: 20181116
  Receipt Date: 20190310
  Transmission Date: 20190417
  Serious: Yes (Other)
  Sender: FDA-Public Use
  Company Number: US-ABBVIE-18K-163-2553298-00

PATIENT
  Age: 49 Year
  Sex: Female
  Weight: 114.86 kg

DRUGS (17)
  1. MELOXICAM. [Concomitant]
     Active Substance: MELOXICAM
     Indication: INFLAMMATION
  2. FLOVENT [Concomitant]
     Active Substance: FLUTICASONE PROPIONATE
     Indication: ASTHMA
  3. FOLIC ACID. [Concomitant]
     Active Substance: FOLIC ACID
     Indication: MIGRAINE
  4. CALCIUM [Concomitant]
     Active Substance: CALCIUM
     Indication: MINERAL SUPPLEMENTATION
  5. VITAMIN C [Concomitant]
     Active Substance: ASCORBIC ACID
     Indication: VITAMIN SUPPLEMENTATION
  6. VITAMIN D3 [Concomitant]
     Active Substance: CHOLECALCIFEROL
     Indication: VITAMIN D DEFICIENCY
  7. TIMOLOL MALEATE. [Concomitant]
     Active Substance: TIMOLOL MALEATE
     Indication: MIGRAINE WITH AURA
  8. MAGNESIUM GLYCINATE [Concomitant]
     Active Substance: MAGNESIUM GLYCINATE
     Indication: MIGRAINE
  9. VITAMIN B12 [Concomitant]
     Active Substance: CYANOCOBALAMIN
     Indication: VITAMIN B12 DEFICIENCY
  10. MAXALT [Concomitant]
     Active Substance: RIZATRIPTAN BENZOATE
     Indication: MIGRAINE
  11. ALBUTEROL. [Concomitant]
     Active Substance: ALBUTEROL
     Indication: ASTHMA
  12. BIOTIN [Concomitant]
     Active Substance: BIOTIN
     Indication: VITAMIN SUPPLEMENTATION
  13. OMEGA 3 [Concomitant]
     Active Substance: OMEGA-3 FATTY ACIDS
     Indication: MEIBOMIAN GLAND DYSFUNCTION
  14. MIRENA [Concomitant]
     Active Substance: LEVONORGESTREL
     Indication: CONTRACEPTION
  15. SPIRONOLACTONE. [Concomitant]
     Active Substance: SPIRONOLACTONE
     Indication: CARDIAC DISORDER
  16. ASPIRIN. [Concomitant]
     Active Substance: ASPIRIN
     Indication: MIGRAINE PROPHYLAXIS
  17. HUMIRA [Suspect]
     Active Substance: ADALIMUMAB
     Indication: RHEUMATOID ARTHRITIS
     Route: 058
     Dates: start: 20170829

REACTIONS (14)
  - Pain in extremity [Not Recovered/Not Resolved]
  - Arthralgia [Unknown]
  - Arthritis [Unknown]
  - Herpes zoster [Unknown]
  - Joint injury [Unknown]
  - Neck injury [Unknown]
  - Nausea [Recovered/Resolved]
  - Meniscus injury [Not Recovered/Not Resolved]
  - Fibromyalgia [Unknown]
  - Bone disorder [Not Recovered/Not Resolved]
  - Arthritis [Recovering/Resolving]
  - Procedural pain [Recovering/Resolving]
  - Joint instability [Not Recovered/Not Resolved]
  - Fall [Unknown]

NARRATIVE: CASE EVENT DATE: 201808
